FAERS Safety Report 7902500-6 (Version None)
Quarter: 2011Q4

REPORT INFORMATION
  Report Type: 
  Country: None (occurrence: None)
  Receive Date: 20111108
  Receipt Date: 20111026
  Transmission Date: 20120403
  Serious: Yes (Hospitalization, Other)
  Sender: FDA-Public Use
  Company Number: US-ELI_LILLY_AND_COMPANY-US201111000955

PATIENT
  Sex: Female

DRUGS (5)
  1. TENOLOL [Concomitant]
  2. FORTEO [Suspect]
     Indication: OSTEOPOROSIS
     Dosage: 20 UG, QD
     Dates: start: 20110901, end: 20111007
  3. LIPITOR [Concomitant]
  4. LORTAB [Concomitant]
  5. CALCIUM W/VITAMIN D NOS [Concomitant]

REACTIONS (5)
  - HUMERUS FRACTURE [None]
  - VISUAL IMPAIRMENT [None]
  - PAIN IN EXTREMITY [None]
  - FALL [None]
  - DIZZINESS [None]
